FAERS Safety Report 5273039-4 (Version None)
Quarter: 2007Q1

REPORT INFORMATION
  Report Type: 
  Country: None (occurrence: None)
  Receive Date: 20070322
  Receipt Date: 20070307
  Transmission Date: 20070707
  Serious: Yes (Hospitalization)
  Sender: FDA-Public Use
  Company Number: US-SHR-US-2006-038183

PATIENT
  Age: 49 Year
  Sex: Female
  Weight: 54.422 kg

DRUGS (7)
  1. BETASERON [Suspect]
     Indication: RELAPSING-REMITTING MULTIPLE SCLEROSIS
     Dosage: 2 MIU, EVERY 2D
     Route: 058
     Dates: start: 20061119, end: 20061204
  2. BETASERON [Suspect]
     Dosage: 4 MIU, EVERY 2D
     Route: 058
     Dates: start: 20061202, end: 20061203
  3. TOPAMAX [Concomitant]
     Indication: MIGRAINE PROPHYLAXIS
     Dosage: 50 MG, 1X/DAY
     Route: 048
     Dates: end: 20061205
  4. TYLENOL [Concomitant]
     Route: 048
  5. NEURONTIN [Concomitant]
     Dosage: 400 MG, 1X/DAY
     Route: 048
     Dates: end: 20061205
  6. ADDERALL XR 10 [Concomitant]
     Dosage: 15 MG, 1X/DAY
     Route: 048
     Dates: end: 20061205
  7. CORTICOSTEROIDS [Concomitant]
     Dates: start: 20061027

REACTIONS (13)
  - ACUTE HEPATIC FAILURE [None]
  - BLOOD POTASSIUM DECREASED [None]
  - DECREASED APPETITE [None]
  - DISORIENTATION [None]
  - DYSARTHRIA [None]
  - FATIGUE [None]
  - FLUID RETENTION [None]
  - HEPATOCELLULAR DAMAGE [None]
  - MIGRAINE [None]
  - NAUSEA [None]
  - PAIN [None]
  - PYREXIA [None]
  - VOMITING [None]
